FAERS Safety Report 9723051 (Version 1)
Quarter: 2013Q4

REPORT INFORMATION
  Report Type: Spontaneous
  Country: US (occurrence: None)
  Receive Date: 20131127
  Receipt Date: 20131127
  Transmission Date: 20140711
  Serious: No
  Sender: FDA-Public Use
  Company Number: None

PATIENT
  Age: 59 Year
  Sex: Female
  Weight: 74.84 kg

DRUGS (1)
  1. SYSTANE BALANCE [Suspect]
     Indication: ASTHENOPIA
     Dates: start: 20131119

REACTIONS (3)
  - Eye irritation [None]
  - Ocular discomfort [None]
  - Ocular hyperaemia [None]
